FAERS Safety Report 16204919 (Version 1)
Quarter: 2019Q2

REPORT INFORMATION
  Report Type: Spontaneous
  Country: US (occurrence: US)
  Receive Date: 20190416
  Receipt Date: 20190416
  Transmission Date: 20190711
  Serious: No
  Sender: FDA-Public Use
  Company Number: US-009507513-1904USA001144

PATIENT
  Age: 61 Year
  Sex: Male

DRUGS (3)
  1. ASMANEX [Suspect]
     Active Substance: MOMETASONE FUROATE
     Indication: ASTHMA
     Dosage: 120 DOSE, 2 INHALATIONS/TWICE DAILY
     Dates: start: 201802
  2. ALLEGRA [Concomitant]
     Active Substance: FEXOFENADINE HYDROCHLORIDE
  3. ASMANEX [Suspect]
     Active Substance: MOMETASONE FUROATE
     Dosage: 120 DOSE, 2 INHALATIONS/TWICE DAILY
     Dates: start: 201903

REACTIONS (5)
  - Wheezing [Not Recovered/Not Resolved]
  - Product dose omission [Unknown]
  - Asthma [Unknown]
  - Product quality issue [Not Recovered/Not Resolved]
  - Poor quality device used [Unknown]

NARRATIVE: CASE EVENT DATE: 201903
